FAERS Safety Report 10245918 (Version 1)
Quarter: 2014Q2

REPORT INFORMATION
  Report Type: Spontaneous
  Country: US (occurrence: US)
  Receive Date: 20140619
  Receipt Date: 20140619
  Transmission Date: 20141212
  Serious: Yes (Other)
  Sender: FDA-Public Use
  Company Number: US-AMGEN INC.-USASP2014044918

PATIENT
  Age: 56 Year
  Sex: Male

DRUGS (3)
  1. ENBREL [Suspect]
     Indication: PSORIASIS
     Dosage: 50 MG, QWK
     Route: 065
     Dates: start: 20140201
  2. METHOTREXATE [Concomitant]
     Dosage: 2.5 MG, 3 TABLETS, QWK
     Route: 065
     Dates: start: 201405
  3. METHOTREXATE [Concomitant]
     Dosage: 2.5 MG, 5 TABLETS, QWK
     Route: 065
     Dates: start: 201405

REACTIONS (3)
  - Mass [Not Recovered/Not Resolved]
  - Ear pain [Not Recovered/Not Resolved]
  - Ear swelling [Not Recovered/Not Resolved]
